FAERS Safety Report 8822132 (Version 1)
Quarter: 2012Q4

REPORT INFORMATION
  Report Type: Report from Study
  Country: US (occurrence: US)
  Receive Date: 20121003
  Receipt Date: 20121003
  Transmission Date: 20130627
  Serious: No
  Sender: FDA-Public Use
  Company Number: US-JNJFOC-20110204599

PATIENT
  Age: 54 Year
  Sex: Female

DRUGS (7)
  1. GOLIMUMAB [Suspect]
     Route: 058
  2. GOLIMUMAB [Suspect]
     Indication: SARCOIDOSIS
     Route: 058
     Dates: start: 20100709, end: 20101222
  3. ARAVA [Concomitant]
     Route: 048
     Dates: start: 200709
  4. SOTALOL [Concomitant]
     Route: 048
  5. FUROSEMIDE [Concomitant]
     Route: 048
     Dates: start: 200709
  6. SPIRONOLACTONE [Concomitant]
     Route: 048
     Dates: start: 200709
  7. IMURAN [Concomitant]
     Route: 048
     Dates: start: 199609

REACTIONS (16)
  - Liposarcoma [Unknown]
  - Arthralgia [Recovering/Resolving]
  - Nausea [Recovered/Resolved]
  - Diarrhoea [Recovered/Resolved]
  - Abdominal pain upper [Recovered/Resolved]
  - Injection site reaction [Recovered/Resolved]
  - Pruritus generalised [Recovered/Resolved]
  - Chemical injury [Recovered/Resolved]
  - Dermatitis contact [Recovering/Resolving]
  - Upper respiratory tract infection [Recovered/Resolved]
  - Arthralgia [Not Recovered/Not Resolved]
  - Oedema peripheral [Recovered/Resolved with Sequelae]
  - Oedema peripheral [Not Recovered/Not Resolved]
  - Tachycardia [Recovered/Resolved]
  - Dehydration [Recovered/Resolved]
  - Blood potassium increased [Recovering/Resolving]
